FAERS Safety Report 22267725 (Version 1)
Quarter: 2023Q2

REPORT INFORMATION
  Report Type: Report from Study
  Country: FI (occurrence: FI)
  Receive Date: 20230430
  Receipt Date: 20230430
  Transmission Date: 20230722
  Serious: Yes (Death, Life-Threatening, Hospitalization, Other)
  Sender: FDA-Public Use
  Company Number: FI-ACTELION-A-CH2018-182049

PATIENT
  Age: 75 Year
  Sex: Female
  Weight: 63 kg

DRUGS (27)
  1. UPTRAVI [Interacting]
     Active Substance: SELEXIPAG
     Indication: Pulmonary arterial hypertension
     Dosage: 400 MCG, QD
     Route: 048
     Dates: start: 20181022, end: 20181028
  2. UPTRAVI [Interacting]
     Active Substance: SELEXIPAG
     Dosage: 800 MCG, QD
     Route: 048
     Dates: start: 20181029, end: 20181105
  3. UPTRAVI [Interacting]
     Active Substance: SELEXIPAG
     Dosage: 1200 MCG, QD
     Route: 048
     Dates: start: 20181105, end: 20181112
  4. OPSUMIT [Suspect]
     Active Substance: MACITENTAN
     Indication: Pulmonary arterial hypertension
     Dosage: 10 MG, QD
     Route: 048
     Dates: start: 20160519, end: 20200418
  5. CLOPIDOGREL [Interacting]
     Active Substance: CLOPIDOGREL BISULFATE
     Indication: Myocardial ischaemia
     Dosage: UNK
     Route: 048
     Dates: start: 20181110, end: 20181111
  6. SILDENAFIL [Concomitant]
     Active Substance: SILDENAFIL
     Indication: Pulmonary arterial hypertension
     Dosage: 120 MG, QD
     Route: 048
     Dates: start: 20160204, end: 20200418
  7. SPIRONOLACTONE [Concomitant]
     Active Substance: SPIRONOLACTONE
     Indication: Pulmonary arterial hypertension
     Dosage: UNK
     Route: 048
     Dates: start: 20180813, end: 20200418
  8. PROLIA [Concomitant]
     Active Substance: DENOSUMAB
     Indication: Pulmonary fibrosis
     Dosage: UNK
     Route: 058
     Dates: start: 20180809, end: 20200418
  9. ASPIRIN [Concomitant]
     Active Substance: ASPIRIN
     Indication: Coronary artery disease
     Dosage: UNK
     Route: 048
     Dates: start: 20150906, end: 20181114
  10. PREDNISOLONE [Concomitant]
     Active Substance: PREDNISOLONE
     Indication: Interstitial lung disease
     Dosage: UNK
     Route: 048
     Dates: start: 20180417, end: 20200418
  11. PREDNISOLONE [Concomitant]
     Active Substance: PREDNISOLONE
     Indication: Pulmonary fibrosis
  12. ENOXAPARIN [Concomitant]
     Active Substance: ENOXAPARIN
     Indication: Acute coronary syndrome
     Dosage: UNK
     Route: 058
     Dates: start: 20181110, end: 20181112
  13. GAVISCON [CALCIUM CARBONATE;POTASSIUM BICARBONATE;SODIUM ALGINATE] [Concomitant]
     Indication: Dyspepsia
     Dosage: UNK
     Route: 048
     Dates: start: 20180328, end: 20181110
  14. FUROSEMIDE [Concomitant]
     Active Substance: FUROSEMIDE
     Indication: Pulmonary arterial hypertension
     Dosage: UNK
     Route: 048
     Dates: start: 20180813, end: 20200418
  15. BISOPROLOL FUMARATE [Concomitant]
     Active Substance: BISOPROLOL FUMARATE
     Indication: Coronary artery disease
     Dosage: UNK
     Route: 048
     Dates: start: 20180813, end: 20200418
  16. CEFUROXIME [Concomitant]
     Active Substance: CEFUROXIME
     Indication: Infection
     Dosage: UNK
     Route: 048
     Dates: start: 20180809, end: 20181110
  17. CEFUROXIME [Concomitant]
     Active Substance: CEFUROXIME
     Indication: Pneumonia
     Dosage: UNK
  18. CARDACE [RAMIPRIL] [Concomitant]
     Indication: Coronary artery disease
     Dosage: UNK
     Route: 048
     Dates: start: 20160406, end: 20200418
  19. CALCIUMCARBONAT [Concomitant]
     Indication: Prophylaxis
     Dosage: UNK
     Route: 048
     Dates: start: 20160509, end: 20200418
  20. AZATHIOPRINE [Concomitant]
     Active Substance: AZATHIOPRINE
     Indication: Pulmonary fibrosis
     Dosage: UNK
     Route: 048
     Dates: start: 20180906, end: 20200418
  21. ATROVENT [Concomitant]
     Active Substance: IPRATROPIUM BROMIDE
     Indication: Interstitial lung disease
     Dosage: UNK
     Route: 055
     Dates: start: 20160330, end: 20200418
  22. ATROVENT [Concomitant]
     Active Substance: IPRATROPIUM BROMIDE
     Indication: Pulmonary fibrosis
  23. ATORVASTATIN [Concomitant]
     Active Substance: ATORVASTATIN
     Indication: Dyslipidaemia
     Dosage: UNK
     Route: 048
     Dates: start: 20160615, end: 20200418
  24. HYPROMELLOSES [Concomitant]
     Active Substance: HYPROMELLOSES
     Indication: Dry eye
     Dosage: UNK
     Route: 050
     Dates: start: 20180101, end: 20200418
  25. PANTOPRAZOLE [Concomitant]
     Active Substance: PANTOPRAZOLE
     Indication: Prophylaxis
     Dosage: UNK
     Route: 048
     Dates: start: 20180328, end: 20200418
  26. NITROGLYCERIN [Concomitant]
     Active Substance: NITROGLYCERIN
     Indication: Coronary artery disease
     Dosage: UNK
     Dates: start: 20120823, end: 20200418
  27. HYDROXOCOBALAMIN ACETATE [Concomitant]
     Active Substance: HYDROXOCOBALAMIN ACETATE
     Indication: Vitamin B12 deficiency
     Dosage: UNK
     Route: 030
     Dates: start: 20121006, end: 20200418

REACTIONS (20)
  - Cardiac arrest [Fatal]
  - Gastrointestinal haemorrhage [Recovered/Resolved]
  - Haematochezia [Recovered/Resolved]
  - Myocardial ischaemia [Recovered/Resolved]
  - Troponin T increased [Recovered/Resolved]
  - Chest pain [Recovered/Resolved]
  - Electrocardiogram change [Recovered/Resolved]
  - Angina pectoris [Recovered/Resolved]
  - N-terminal prohormone brain natriuretic peptide increased [Recovered/Resolved]
  - Percutaneous coronary intervention [Unknown]
  - Stent placement [Unknown]
  - Pneumonia [Not Recovered/Not Resolved]
  - Pyrexia [Not Recovered/Not Resolved]
  - Cough [Not Recovered/Not Resolved]
  - Dyspnoea [Not Recovered/Not Resolved]
  - Transfusion [Unknown]
  - Anaemia [Recovered/Resolved]
  - Drug interaction [Unknown]
  - Nausea [Recovered/Resolved]
  - Osteoarthritis [Unknown]

NARRATIVE: CASE EVENT DATE: 20181110
